FAERS Safety Report 9144900 (Version 1)
Quarter: 2013Q1

REPORT INFORMATION
  Report Type: Spontaneous
  Country: JP (occurrence: JP)
  Receive Date: 20130307
  Receipt Date: 20130307
  Transmission Date: 20140127
  Serious: Yes (Other)
  Sender: FDA-Public Use
  Company Number: JP-009507513-1303JPN000729

PATIENT
  Sex: Female

DRUGS (1)
  1. GASTER D [Suspect]
     Route: 048

REACTIONS (1)
  - Dementia [Unknown]
